FAERS Safety Report 8106426-7 (Version None)
Quarter: 2012Q1

REPORT INFORMATION
  Report Type: 
  Country: None (occurrence: None)
  Receive Date: 20120202
  Receipt Date: 20120130
  Transmission Date: 20120608
  Serious: Yes (Death)
  Sender: FDA-Public Use
  Company Number: US-CELGENEUS-163-21880-12013039

PATIENT
  Sex: Female
  Weight: 68.1 kg

DRUGS (11)
  1. PREVACID [Concomitant]
     Dosage: 15 MICROGRAM
     Route: 065
  2. MELOXICAM [Concomitant]
     Dosage: 7.5 MILLIGRAM
     Route: 065
  3. LORTAB [Concomitant]
     Dosage: 7.5-500 MG
     Route: 065
  4. PREDNISONE TAB [Concomitant]
     Dosage: 10 MILLIGRAM
     Route: 065
  5. INDERAL LA [Concomitant]
     Dosage: 60 MILLIGRAM
     Route: 065
  6. ASPIRIN [Concomitant]
     Dosage: 81 MILLIGRAM
     Route: 065
  7. LASIX [Concomitant]
     Dosage: 40 MILLIGRAM
     Route: 065
  8. CYMBALTA [Concomitant]
     Route: 065
  9. ACETAMINOPHEN [Concomitant]
     Route: 065
  10. REVLIMID [Suspect]
     Indication: MULTIPLE MYELOMA
     Dosage: 15 MILLIGRAM
     Dates: start: 20110314, end: 20120104
  11. LORAZEPAM [Concomitant]
     Dosage: .5 MILLIGRAM
     Route: 065

REACTIONS (1)
  - DEATH [None]
